FAERS Safety Report 9686694 (Version 2)
Quarter: 2014Q1

REPORT INFORMATION
  Report Type: Spontaneous
  Country: US (occurrence: US)
  Receive Date: 20131113
  Receipt Date: 20140109
  Transmission Date: 20141002
  Serious: Yes (Other)
  Sender: FDA-Public Use
  Company Number: US-ABBVIE-13P-163-1166794-00

PATIENT
  Sex: Female

DRUGS (1)
  1. LEVOTHYROXINE [Suspect]
     Indication: MATERNAL EXPOSURE TIMING UNSPECIFIED
     Route: 064

REACTIONS (10)
  - Basedow^s disease [Recovered/Resolved]
  - Goitre [Recovered/Resolved]
  - Respiratory failure [Recovered/Resolved]
  - Hyperthyroidism [Recovered/Resolved]
  - Tachycardia [Recovered/Resolved]
  - Cardiac failure congestive [Recovered/Resolved]
  - Ejection fraction decreased [Recovered/Resolved]
  - Fontanelle depressed [Recovered/Resolved]
  - Exophthalmos [Recovered/Resolved]
  - Foetal exposure during pregnancy [Unknown]
